FAERS Safety Report 9013306 (Version 1)
Quarter: 2013Q1

REPORT INFORMATION
  Report Type: Spontaneous
  Country: US (occurrence: US)
  Receive Date: 20130115
  Receipt Date: 20130115
  Transmission Date: 20140127
  Serious: Yes (Hospitalization, Disabling)
  Sender: FDA-Public Use
  Company Number: US-009507513-0909USA03405

PATIENT
  Age: 14 Year
  Sex: Female
  Weight: 40.82 kg

DRUGS (1)
  1. SINGULAIR [Suspect]
     Indication: ASTHMA
     Dosage: 5 MG, PRN
     Route: 048
     Dates: start: 20040505, end: 20050923

REACTIONS (1)
  - Suicidal ideation [Unknown]
